FAERS Safety Report 11441432 (Version 1)
Quarter: 2015Q3

REPORT INFORMATION
  Report Type: Spontaneous
  Country: US (occurrence: US)
  Receive Date: 20150901
  Receipt Date: 20150901
  Transmission Date: 20151125
  Serious: Yes (Hospitalization)
  Sender: FDA-Public Use
  Company Number: US-ROCHE-1147433

PATIENT
  Sex: Male

DRUGS (3)
  1. BOCEPREVIR [Concomitant]
     Active Substance: BOCEPREVIR
     Route: 065
  2. PEGASYS [Suspect]
     Active Substance: PEGINTERFERON ALFA-2A
     Indication: CHRONIC HEPATITIS C
     Route: 058
     Dates: start: 2012, end: 20121011
  3. RIBAVIRIN. [Suspect]
     Active Substance: RIBAVIRIN
     Indication: CHRONIC HEPATITIS C
     Route: 048
     Dates: start: 2012, end: 20121011

REACTIONS (2)
  - Depression [Unknown]
  - Confusional state [Unknown]
